FAERS Safety Report 5023241-1 (Version None)
Quarter: 2006Q2

REPORT INFORMATION
  Report Type: 
  Country: None (occurrence: None)
  Receive Date: 20060605
  Receipt Date: 20060518
  Transmission Date: 20061013
  Serious: Yes (Death, Other)
  Sender: FDA-Public Use
  Company Number: BR-2006-012126

PATIENT
  Age: 27 Year
  Sex: Female

DRUGS (1)
  1. BETASERON [Suspect]
     Indication: MULTIPLE SCLEROSIS
     Dosage: MIU, SUBCUTANEOUS
     Route: 058
     Dates: start: 20040701, end: 20051001

REACTIONS (6)
  - CONSTIPATION [None]
  - MONOPLEGIA [None]
  - PULMONARY EMBOLISM [None]
  - PYREXIA [None]
  - URINARY INCONTINENCE [None]
  - URINARY TRACT INFECTION [None]
